FAERS Safety Report 6149651-7 (Version None)
Quarter: 2009Q2

REPORT INFORMATION
  Report Type: 
  Country: None (occurrence: None)
  Receive Date: 20090409
  Receipt Date: 20090403
  Transmission Date: 20091009
  Serious: Yes (Other)
  Sender: FDA-Public Use
  Company Number: DE-AVENTIS-200910935DE

PATIENT
  Age: 84 Year
  Sex: Male

DRUGS (1)
  1. CLEXANE [Suspect]
     Indication: ANTICOAGULANT THERAPY
     Dosage: DOSE: NOT REPORTED
     Route: 058
     Dates: start: 20090201

REACTIONS (1)
  - SPLENIC RUPTURE [None]
